FAERS Safety Report 5776418-1 (Version None)
Quarter: 2008Q2

REPORT INFORMATION
  Report Type: 
  Country: None (occurrence: None)
  Receive Date: 20080618
  Receipt Date: 20080528
  Transmission Date: 20081010
  Serious: Yes (Other)
  Sender: FDA-Public Use
  Company Number: BR-BAYER-200814923LA

PATIENT
  Age: 41 Year
  Sex: Female

DRUGS (6)
  1. BETAFERON [Suspect]
     Indication: MULTIPLE SCLEROSIS
     Dosage: UNIT DOSE: 8 MIU
     Route: 058
     Dates: start: 20040101, end: 20071001
  2. BETAFERON [Suspect]
     Dosage: UNIT DOSE: 8 MIU
     Route: 058
     Dates: start: 20071001, end: 20080525
  3. ALPRAZOLAM [Concomitant]
     Indication: NERVOUSNESS
     Dosage: TOTAL DAILY DOSE: 2 MG  UNIT DOSE: 1 MG
     Route: 048
     Dates: start: 20040101
  4. ROHYPNOL [Concomitant]
     Indication: MUSCLE SPASMS
     Dosage: TOTAL DAILY DOSE: 1 MG  UNIT DOSE: 1 MG
     Route: 048
     Dates: start: 20040101
  5. BACLON [Concomitant]
     Indication: MUSCLE SPASMS
     Dosage: TOTAL DAILY DOSE: 10 MG  UNIT DOSE: 10 MG
     Route: 048
     Dates: start: 20040101
  6. SERTRALINE [Concomitant]
     Indication: DEPRESSION
     Dosage: TOTAL DAILY DOSE: 50 MG  UNIT DOSE: 50 MG
     Route: 048
     Dates: start: 20040101

REACTIONS (7)
  - ASTHENIA [None]
  - FORMICATION [None]
  - HYPOTONIA [None]
  - INFLUENZA LIKE ILLNESS [None]
  - MULTIPLE SCLEROSIS [None]
  - MULTIPLE SCLEROSIS RELAPSE [None]
  - MYALGIA [None]
